FAERS Safety Report 6927855-0 (Version None)
Quarter: 2010Q3

REPORT INFORMATION
  Report Type: 
  Country: None (occurrence: None)
  Receive Date: 20100817
  Receipt Date: 20100805
  Transmission Date: 20110219
  Serious: Yes (Other)
  Sender: FDA-Public Use
  Company Number: IE-PFIZER INC-2010085066

PATIENT
  Age: 71 Year
  Sex: Female

DRUGS (7)
  1. EXEMESTANE [Suspect]
     Indication: BREAST CANCER
     Dosage: 25 MG, 1X/DAY
     Route: 048
     Dates: start: 20091202, end: 20100311
  2. FOSAMAX [Concomitant]
     Indication: OSTEOPOROSIS
     Dosage: 70 MG, WEEKLY
     Route: 048
  3. CALCICHEW-D3 [Concomitant]
     Indication: OSTEOPOROSIS
     Dosage: 1 DF, 2X/DAY
     Route: 048
  4. ZESTRIL [Concomitant]
     Indication: HYPERTENSION
     Dosage: 10 MG, 4X/DAY
     Route: 048
  5. BISOPROLOL FUMARATE [Concomitant]
     Indication: HYPERTENSION
     Dosage: 7.5 MG, 4X/DAY
     Route: 048
  6. LASIX [Concomitant]
     Indication: HYPERTENSION
     Dosage: 20 MG, 4X/DAY
     Route: 048
  7. PARACETAMOL [Concomitant]
     Indication: PAIN
     Dosage: UNK
     Route: 048

REACTIONS (1)
  - VISUAL FIELD DEFECT [None]
